FAERS Safety Report 8286842-3 (Version None)
Quarter: 2012Q2

REPORT INFORMATION
  Report Type: 
  Country: None (occurrence: None)
  Receive Date: 20120416
  Receipt Date: 20120401
  Transmission Date: 20120825
  Serious: Yes (Hospitalization, Other)
  Sender: FDA-Public Use
  Company Number: US-ELI_LILLY_AND_COMPANY-US201112005560

PATIENT
  Age: 88 Year
  Sex: Female
  Weight: 48.5 kg

DRUGS (2)
  1. FORTEO [Suspect]
     Indication: OSTEOPOROSIS
     Dosage: 20 UG, QD
     Route: 058
     Dates: start: 20111121
  2. LISINOPRIL [Concomitant]
     Dosage: 5 G, QD

REACTIONS (6)
  - EYEBALL RUPTURE [None]
  - FALL [None]
  - CLAVICLE FRACTURE [None]
  - INJECTION SITE REACTION [None]
  - SYNCOPE [None]
  - DIZZINESS [None]
